FAERS Safety Report 8032691-0 (Version None)
Quarter: 2012Q1

REPORT INFORMATION
  Report Type: 
  Country: None (occurrence: None)
  Receive Date: 20120110
  Receipt Date: 20120103
  Transmission Date: 20120608
  Serious: Yes (Other)
  Sender: FDA-Public Use
  Company Number: US-BAYER-2011-055248

PATIENT
  Age: 21 Year
  Sex: Female
  Weight: 90.703 kg

DRUGS (5)
  1. LORTAB [Concomitant]
     Dosage: UNK
     Dates: start: 20090101
  2. PROTONIX [Concomitant]
     Dosage: UNK
     Dates: start: 20090101
  3. CELEXA [Concomitant]
     Dosage: UNK
     Dates: start: 20090101
  4. YASMIN [Suspect]
     Indication: PREMENSTRUAL SYNDROME
     Dosage: UNK
     Dates: start: 20070101
  5. YAZ [Suspect]
     Indication: PREMENSTRUAL SYNDROME
     Dosage: UNK
     Dates: start: 20060101

REACTIONS (4)
  - GALLBLADDER DISORDER [None]
  - PAIN [None]
  - FEAR [None]
  - CHOLECYSTITIS [None]
